FAERS Safety Report 9110678 (Version 1)
Quarter: 2013Q1

REPORT INFORMATION
  Report Type: Spontaneous
  Country: US (occurrence: US)
  Receive Date: 20130219
  Receipt Date: 20130219
  Transmission Date: 20140127
  Serious: No
  Sender: FDA-Public Use
  Company Number: US-BRISTOL-MYERS SQUIBB COMPANY-16712994

PATIENT
  Age: 50 Year
  Sex: Female

DRUGS (4)
  1. ORENCIA [Suspect]
     Indication: RHEUMATOID ARTHRITIS
     Dosage: LAST DOSAGE ON 01MAY2012.NO OF DOSAGES-3
     Route: 042
     Dates: start: 20120322, end: 20120501
  2. ASPIRIN [Concomitant]
  3. PLAQUENIL [Concomitant]
  4. ARAVA [Concomitant]

REACTIONS (1)
  - Hypersensitivity [Unknown]
